FAERS Safety Report 13412365 (Version 42)
Quarter: 2019Q2

REPORT INFORMATION
  Report Type: Spontaneous
  Country: US (occurrence: CA)
  Receive Date: 20170406
  Receipt Date: 20190515
  Transmission Date: 20190711
  Serious: Yes (Other)
  Sender: FDA-Public Use
  Company Number: CA-009507513-1602CAN004910

PATIENT
  Age: 70 Year
  Sex: Female
  Weight: 59.5 kg

DRUGS (29)
  1. KEYTRUDA [Suspect]
     Active Substance: PEMBROLIZUMAB
     Dosage: 128 MG, Q3W
     Route: 042
     Dates: start: 2017, end: 2017
  2. KEYTRUDA [Suspect]
     Active Substance: PEMBROLIZUMAB
     Dosage: 128MG, Q3W
     Route: 042
     Dates: start: 20180302, end: 2018
  3. KEYTRUDA [Suspect]
     Active Substance: PEMBROLIZUMAB
     Dosage: 120 MG, Q3W
     Route: 042
     Dates: start: 20180928, end: 2018
  4. KEYTRUDA [Suspect]
     Active Substance: PEMBROLIZUMAB
     Dosage: 120 MILLIGRAM, Q3W
     Route: 042
     Dates: start: 20181220
  5. KEYTRUDA [Suspect]
     Active Substance: PEMBROLIZUMAB
     Dosage: 120 MILLIGRAM, Q3W, STRENGTH : 2 MG/KG
  6. KEYTRUDA [Suspect]
     Active Substance: PEMBROLIZUMAB
     Dosage: 128MG, Q3W
     Route: 042
     Dates: end: 2015
  7. KEYTRUDA [Suspect]
     Active Substance: PEMBROLIZUMAB
     Dosage: 120 MILLIGRAM, Q3W
     Route: 042
     Dates: start: 20181130
  8. KEYTRUDA [Suspect]
     Active Substance: PEMBROLIZUMAB
     Dosage: 128 MG, Q3W
     Route: 042
     Dates: start: 20170728, end: 20170817
  9. KEYTRUDA [Suspect]
     Active Substance: PEMBROLIZUMAB
     Dosage: 120 MILIGRAM, Q3W
     Route: 042
     Dates: start: 20190111
  10. KEYTRUDA [Suspect]
     Active Substance: PEMBROLIZUMAB
     Indication: METASTATIC MALIGNANT MELANOMA
     Dosage: 121 MILLIGRAM, Q3W
     Route: 042
     Dates: start: 20150626, end: 2016
  11. KEYTRUDA [Suspect]
     Active Substance: PEMBROLIZUMAB
     Dosage: 128 MG, Q3W
     Route: 042
     Dates: start: 20160626, end: 2016
  12. KEYTRUDA [Suspect]
     Active Substance: PEMBROLIZUMAB
     Dosage: 128MG, Q3W
     Route: 042
     Dates: start: 20180504, end: 2018
  13. KEYTRUDA [Suspect]
     Active Substance: PEMBROLIZUMAB
     Dosage: 120 MG, Q3W
     Route: 042
     Dates: start: 20180706, end: 201807
  14. KEYTRUDA [Suspect]
     Active Substance: PEMBROLIZUMAB
     Dosage: 120 MG, Q3W
     Route: 042
     Dates: start: 20180817, end: 2018
  15. KEYTRUDA [Suspect]
     Active Substance: PEMBROLIZUMAB
     Dosage: 128 MG, Q3W
     Route: 042
     Dates: start: 2017, end: 2017
  16. KEYTRUDA [Suspect]
     Active Substance: PEMBROLIZUMAB
     Dosage: 120 MILLIGRAM, Q3W
     Route: 042
  17. KEYTRUDA [Suspect]
     Active Substance: PEMBROLIZUMAB
     Dosage: 120 MILLIGRAM, Q3W(STRENGTH 2M/KG)
     Route: 042
     Dates: end: 20190508
  18. KEYTRUDA [Suspect]
     Active Substance: PEMBROLIZUMAB
     Dosage: 120 MG, Q3W
     Route: 042
     Dates: start: 20180615, end: 2018
  19. KEYTRUDA [Suspect]
     Active Substance: PEMBROLIZUMAB
     Dosage: 120 MG, Q3W
     Route: 042
     Dates: start: 20180727
  20. KEYTRUDA [Suspect]
     Active Substance: PEMBROLIZUMAB
     Dosage: 120 MILLIGRAM, Q3W
     Route: 042
     Dates: start: 20190222
  21. INDAPAMIDE. [Suspect]
     Active Substance: INDAPAMIDE
     Dosage: 1.25 MILLIGRAM, QD
     Route: 048
     Dates: start: 20181025
  22. KEYTRUDA [Suspect]
     Active Substance: PEMBROLIZUMAB
     Dosage: 128 MG, Q3W
     Route: 042
     Dates: start: 2016, end: 2016
  23. KEYTRUDA [Suspect]
     Active Substance: PEMBROLIZUMAB
     Dosage: 120 MG, Q3W
     Route: 042
     Dates: start: 20180525, end: 2018
  24. KEYTRUDA [Suspect]
     Active Substance: PEMBROLIZUMAB
     Dosage: 120 MILLIGRAM, Q32
     Route: 042
     Dates: start: 2018
  25. KEYTRUDA [Suspect]
     Active Substance: PEMBROLIZUMAB
     Dosage: 128 MG, Q3W
     Route: 042
     Dates: start: 2016, end: 2016
  26. KEYTRUDA [Suspect]
     Active Substance: PEMBROLIZUMAB
     Dosage: 128 MG, Q3W
     Route: 042
     Dates: start: 20171229
  27. KEYTRUDA [Suspect]
     Active Substance: PEMBROLIZUMAB
     Dosage: 120 MG, Q3W
     Route: 042
     Dates: start: 2018, end: 2018
  28. KEYTRUDA [Suspect]
     Active Substance: PEMBROLIZUMAB
     Dosage: 120 MILLIGRAM, Q32
     Route: 042
     Dates: start: 20181019
  29. KEYTRUDA [Suspect]
     Active Substance: PEMBROLIZUMAB
     Dosage: 120 MILLIGRAM, Q3W
     Route: 042
     Dates: end: 20190425

REACTIONS (34)
  - Weight fluctuation [Unknown]
  - Pyrexia [Unknown]
  - Mass [Unknown]
  - Vein rupture [Unknown]
  - Blood pressure fluctuation [Unknown]
  - Vital functions abnormal [Unknown]
  - Dry mouth [Unknown]
  - Constipation [Not Recovered/Not Resolved]
  - Hypertension [Unknown]
  - Hypertension [Unknown]
  - Oropharyngeal pain [Unknown]
  - Constipation [Unknown]
  - Dry mouth [Unknown]
  - Blood pressure increased [Unknown]
  - Fatigue [Unknown]
  - Heart rate abnormal [Unknown]
  - Brain neoplasm [Unknown]
  - Vital functions abnormal [Unknown]
  - Vital functions abnormal [Recovering/Resolving]
  - Dyspnoea [Unknown]
  - Pain in extremity [Unknown]
  - Vital functions abnormal [Unknown]
  - Productive cough [Recovered/Resolved]
  - Blood pressure decreased [Unknown]
  - Blood pressure fluctuation [Unknown]
  - Blood pressure abnormal [Unknown]
  - Nasopharyngitis [Unknown]
  - Vascular fragility [Unknown]
  - Vital functions abnormal [Unknown]
  - Rhinorrhoea [Unknown]
  - Productive cough [Recovered/Resolved]
  - Blood pressure increased [Unknown]
  - Influenza [Unknown]
  - Fatigue [Unknown]

NARRATIVE: CASE EVENT DATE: 2016
